FAERS Safety Report 17407401 (Version 1)
Quarter: 2020Q1

REPORT INFORMATION
  Report Type: Spontaneous
  Country: US (occurrence: US)
  Receive Date: 20200128
  Receipt Date: 20200128
  Transmission Date: 20200409
  Serious: Yes (Hospitalization)
  Sender: FDA-Public Use
  Company Number: None

PATIENT
  Age: 56 Year
  Sex: Female

DRUGS (1)
  1. PENICILLIN G POTASSIUM. [Suspect]
     Active Substance: PENICILLIN G POTASSIUM
     Indication: SEPSIS
     Dosage: ?          OTHER STRENGTH:60000 UNIT/ML;  MIILLION UNITS?
     Route: 042
     Dates: start: 20200118

REACTIONS (2)
  - Aggression [None]
  - Disorientation [None]

NARRATIVE: CASE EVENT DATE: 20190124
